FAERS Safety Report 25785174 (Version 2)
Quarter: 2025Q4

REPORT INFORMATION
  Report Type: Report from Study
  Country: IN (occurrence: IN)
  Receive Date: 20250910
  Receipt Date: 20251027
  Transmission Date: 20260117
  Serious: Yes (Death, Hospitalization, Other)
  Sender: CIPLA
  Company Number: IN-CIPLA LTD.-2025IN11267

PATIENT

DRUGS (103)
  1. ACYCLOVIR [Suspect]
     Active Substance: ACYCLOVIR
     Indication: Varicella
     Dosage: 200 MILLIGRAM, TID (TDS) (1/2 TAB FOR 3 TIMES A DAY)
     Route: 048
     Dates: start: 20250310, end: 20250818
  2. ACYCLOVIR [Suspect]
     Active Substance: ACYCLOVIR
     Indication: Prophylaxis
  3. PREDNISOLONE [Concomitant]
     Active Substance: PREDNISOLONE
     Indication: Philadelphia chromosome positive
     Dosage: TAPER TO 25-20 MG (OVER 30 MINUTES)
     Route: 042
     Dates: start: 20250316
  4. PREDNISOLONE [Concomitant]
     Active Substance: PREDNISOLONE
     Indication: Acute lymphocytic leukaemia
     Dosage: TAPER TO 20-10 MG (OVER 30 MINUTES)
     Route: 042
     Dates: start: 20250317
  5. PREDNISOLONE [Concomitant]
     Active Substance: PREDNISOLONE
     Dosage: TAPER TO 10-5 MG (OVER 30 MINUTES)
     Route: 042
     Dates: start: 20250318
  6. PREDNISOLONE [Concomitant]
     Active Substance: PREDNISOLONE
     Dosage: 10 MILLIGRAM (OVER 30 MINUTES)
     Route: 042
     Dates: start: 20250319
  7. PREDNISOLONE [Concomitant]
     Active Substance: PREDNISOLONE
     Dosage: 5 MILLIGRAM (OVER 30 MIN)
     Route: 042
     Dates: start: 20250320
  8. PREDNISOLONE [Concomitant]
     Active Substance: PREDNISOLONE
     Dosage: 2.5 MILLIGRAM (OVER 30 MIN)
     Route: 042
     Dates: start: 20250321
  9. PREDNISOLONE [Concomitant]
     Active Substance: PREDNISOLONE
     Dosage: 2.5 MILLIGRAM (OVER 30 MIN)
     Route: 042
     Dates: start: 20250215, end: 20250321
  10. DASATINIB [Concomitant]
     Active Substance: DASATINIB
     Indication: Philadelphia chromosome positive
     Dosage: 80 MILLIGRAM/SQ. METER, QD
     Route: 065
     Dates: start: 20250303
  11. DASATINIB [Concomitant]
     Active Substance: DASATINIB
     Indication: Acute lymphocytic leukaemia
     Dosage: 80 MILLIGRAM/SQ. METER, QD
     Route: 065
     Dates: start: 20250304
  12. DASATINIB [Concomitant]
     Active Substance: DASATINIB
     Dosage: 80 MILLIGRAM/SQ. METER, QD
     Route: 065
     Dates: start: 20250305
  13. DASATINIB [Concomitant]
     Active Substance: DASATINIB
     Dosage: 80 MILLIGRAM/SQ. METER, QD
     Route: 065
     Dates: start: 20250306
  14. DASATINIB [Concomitant]
     Active Substance: DASATINIB
     Dosage: 80 MILLIGRAM/SQ. METER, QD
     Route: 065
     Dates: start: 20250307
  15. DASATINIB [Concomitant]
     Active Substance: DASATINIB
     Dosage: 80 MILLIGRAM/SQ. METER, QD
     Route: 065
     Dates: start: 20250310
  16. DASATINIB [Concomitant]
     Active Substance: DASATINIB
     Dosage: 80 MILLIGRAM/SQ. METER, QD
     Route: 065
     Dates: start: 20250311
  17. DASATINIB [Concomitant]
     Active Substance: DASATINIB
     Dosage: 80 MILLIGRAM/SQ. METER, QD
     Route: 065
     Dates: start: 20250312
  18. DASATINIB [Concomitant]
     Active Substance: DASATINIB
     Dosage: 80 MILLIGRAM/SQ. METER, QD
     Route: 065
     Dates: start: 20250313
  19. DASATINIB [Concomitant]
     Active Substance: DASATINIB
     Dosage: 80 MILLIGRAM/SQ. METER, QD
     Route: 065
     Dates: start: 20250314
  20. DASATINIB [Concomitant]
     Active Substance: DASATINIB
     Dosage: 80 MILLIGRAM/SQ. METER, QD
     Route: 065
     Dates: start: 20250315
  21. DASATINIB [Concomitant]
     Active Substance: DASATINIB
     Dosage: 70 MILLIGRAM/SQ. METER, QD
     Route: 065
     Dates: start: 20250326
  22. DASATINIB [Concomitant]
     Active Substance: DASATINIB
     Dosage: 80 MILLIGRAM/SQ. METER, QD
     Route: 065
     Dates: start: 20250302
  23. DASATINIB [Concomitant]
     Active Substance: DASATINIB
     Dosage: 80 MILLIGRAM/SQ. METER, QD
     Route: 065
     Dates: start: 20250519
  24. VINCRISTINE [Concomitant]
     Active Substance: VINCRISTINE
     Indication: Philadelphia chromosome positive
     Dosage: 1.1 MILLIGRAM (MAXIMUM,2MG), SLOW INTRAVENOUS PUSH, WEEKLY. FOR FOUR (4) DOSE
     Route: 042
     Dates: start: 20250222
  25. VINCRISTINE [Concomitant]
     Active Substance: VINCRISTINE
     Indication: Acute lymphocytic leukaemia
     Dosage: 1.1 MILLIGRAM (MAXIMUM,2MG), SLOW INTRAVENOUS PUSH, WEEKLY. FOR FOUR (4) DOSE
     Route: 042
     Dates: start: 20250301
  26. VINCRISTINE [Concomitant]
     Active Substance: VINCRISTINE
     Dosage: 1.1 MILLIGRAM (MAXIMUM,2MG), SLOW INTRAVENOUS PUSH, WEEKLY. FOR FOUR (4) DOSE
     Route: 042
     Dates: start: 20250316
  27. VINCRISTINE [Concomitant]
     Active Substance: VINCRISTINE
     Dosage: 1.1 MILLIGRAM (MAXIMUM,2MG), SLOW INTRAVENOUS PUSH, WEEKLY. FOR FOUR (4) DOSE
     Route: 042
     Dates: start: 20250410
  28. VINCRISTINE [Concomitant]
     Active Substance: VINCRISTINE
     Dosage: 1.1 MILLIGRAM (MAXIMUM,2MG), SLOW INTRAVENOUS PUSH, WEEKLY. FOR FOUR (4) DOSE
     Route: 042
     Dates: start: 20250417
  29. VINCRISTINE [Concomitant]
     Active Substance: VINCRISTINE
     Dosage: 1.1 MILLIGRAM (MAXIMUM,2MG), SLOW INTRAVENOUS PUSH, WEEKLY. FOR FOUR (4) DOSE
     Route: 042
     Dates: start: 20250508
  30. VINCRISTINE [Concomitant]
     Active Substance: VINCRISTINE
     Dosage: 1.1 MILLIGRAM (MAXIMUM,2MG), SLOW INTRAVENOUS PUSH, WEEKLY. FOR FOUR (4) DOSE
     Route: 042
     Dates: start: 20250516
  31. VINCRISTINE [Concomitant]
     Active Substance: VINCRISTINE
     Dosage: 1.1 MILLIGRAM (MAXIMUM,2MG), SLOW INTRAVENOUS PUSH, WEEKLY. FOR FOUR (4) DOSE
     Route: 042
     Dates: start: 20250824, end: 20250824
  32. MERCAPTOPURINE [Concomitant]
     Active Substance: MERCAPTOPURINE
     Indication: Philadelphia chromosome positive
     Dosage: 60 MILLIGRAM, QD DAILY, AT NIGHT, DAY 1-14 + DAY 29-42
     Route: 065
     Dates: start: 20250326
  33. MERCAPTOPURINE [Concomitant]
     Active Substance: MERCAPTOPURINE
     Indication: Acute lymphocytic leukaemia
     Dosage: 60 MILLIGRAM, QD DAILY, AT NIGHT, DAY 1-14 + DAY 29-42
     Route: 065
     Dates: start: 20250327
  34. MERCAPTOPURINE [Concomitant]
     Active Substance: MERCAPTOPURINE
     Dosage: 60 MILLIGRAM, QD DAILY, AT NIGHT, DAY 1-14 + DAY 29-42
     Route: 065
     Dates: start: 20250328
  35. MERCAPTOPURINE [Concomitant]
     Active Substance: MERCAPTOPURINE
     Dosage: 60 MILLIGRAM, QD DAILY, AT NIGHT, DAY 1-14 + DAY 29-42
     Route: 065
     Dates: start: 20250329
  36. MERCAPTOPURINE [Concomitant]
     Active Substance: MERCAPTOPURINE
     Dosage: 60 MILLIGRAM, QD DAILY, AT NIGHT, DAY 1-14 + DAY 29-42
     Route: 065
     Dates: start: 20250330
  37. MERCAPTOPURINE [Concomitant]
     Active Substance: MERCAPTOPURINE
     Dosage: 0.5 DOSAGE FORM, QD DAILY, AT NIGHT, DAY 1-14 + DAY 29-42
     Route: 065
     Dates: start: 20250331
  38. MERCAPTOPURINE [Concomitant]
     Active Substance: MERCAPTOPURINE
     Dosage: 0.5 DOSAGE FORM, QD DAILY, AT NIGHT, DAY 1-14 + DAY 29-42
     Route: 065
     Dates: start: 20250401
  39. MERCAPTOPURINE [Concomitant]
     Active Substance: MERCAPTOPURINE
     Dosage: 60 MILLIGRAM, QD DAILY, AT NIGHT, DAY 1-14 + DAY 29-42
     Route: 065
     Dates: start: 20250402
  40. MERCAPTOPURINE [Concomitant]
     Active Substance: MERCAPTOPURINE
     Dosage: 60 MILLIGRAM, QD DAILY, AT NIGHT, DAY 1-14 + DAY 29-42
     Route: 065
     Dates: start: 20250403
  41. MERCAPTOPURINE [Concomitant]
     Active Substance: MERCAPTOPURINE
     Dosage: 60 MILLIGRAM, QD DAILY, AT NIGHT, DAY 1-14 + DAY 29-42
     Route: 065
     Dates: start: 20250404
  42. MERCAPTOPURINE [Concomitant]
     Active Substance: MERCAPTOPURINE
     Dosage: 60 MILLIGRAM, QD DAILY, AT NIGHT, DAY 1-14 + DAY 29-42
     Route: 065
     Dates: start: 20250405
  43. MERCAPTOPURINE [Concomitant]
     Active Substance: MERCAPTOPURINE
     Dosage: 60 MILLIGRAM, QD DAILY, AT NIGHT, DAY 1-14 + DAY 29-42
     Route: 065
     Dates: start: 20250406
  44. MERCAPTOPURINE [Concomitant]
     Active Substance: MERCAPTOPURINE
     Dosage: 0.5 DOSAGE FORM, QD DAILY, AT NIGHT, DAY 1-14 + DAY 29-42
     Route: 065
     Dates: start: 20250407
  45. MERCAPTOPURINE [Concomitant]
     Active Substance: MERCAPTOPURINE
     Dosage: 0.5 DOSAGE FORM, QD DAILY, AT NIGHT, DAY 1-14 + DAY 29-42
     Route: 065
     Dates: start: 20250408
  46. MERCAPTOPURINE [Concomitant]
     Active Substance: MERCAPTOPURINE
     Dosage: 60 MILLIGRAM, QD DAILY, AT NIGHT, DAY 1-14 + DAY 29-42
     Route: 065
     Dates: start: 20250423
  47. MERCAPTOPURINE [Concomitant]
     Active Substance: MERCAPTOPURINE
     Dosage: 60 MILLIGRAM, QD DAILY, AT NIGHT, DAY 1-14 + DAY 29-42
     Route: 065
     Dates: start: 20250424
  48. MERCAPTOPURINE [Concomitant]
     Active Substance: MERCAPTOPURINE
     Dosage: 60 MILLIGRAM, QD DAILY, AT NIGHT, DAY 1-14 + DAY 29-42
     Route: 065
     Dates: start: 20250425
  49. MERCAPTOPURINE [Concomitant]
     Active Substance: MERCAPTOPURINE
     Dosage: 60 MILLIGRAM, QD DAILY, AT NIGHT, DAY 1-14 + DAY 29-42
     Route: 065
     Dates: start: 20250426
  50. MERCAPTOPURINE [Concomitant]
     Active Substance: MERCAPTOPURINE
     Dosage: 0.5 DOSAGE FORM, QD DAILY, AT NIGHT, DAY 1-14 + DAY 29-42
     Route: 065
     Dates: start: 20250427
  51. MERCAPTOPURINE [Concomitant]
     Active Substance: MERCAPTOPURINE
     Dosage: 0.5 DOSAGE FORM, QD DAILY, AT NIGHT, DAY 1-14 + DAY 29-42
     Route: 065
     Dates: start: 20250428
  52. MERCAPTOPURINE [Concomitant]
     Active Substance: MERCAPTOPURINE
     Dosage: 60 MILLIGRAM, QD DAILY, AT NIGHT, DAY 1-14 + DAY 29-42
     Route: 065
     Dates: start: 20250429
  53. MERCAPTOPURINE [Concomitant]
     Active Substance: MERCAPTOPURINE
     Dosage: 60 MILLIGRAM, QD DAILY, AT NIGHT, DAY 1-14 + DAY 29-42
     Route: 065
     Dates: start: 20250430
  54. MERCAPTOPURINE [Concomitant]
     Active Substance: MERCAPTOPURINE
     Dosage: 60 MILLIGRAM, QD DAILY, AT NIGHT, DAY 1-14 + DAY 29-42
     Route: 065
     Dates: start: 20250501
  55. MERCAPTOPURINE [Concomitant]
     Active Substance: MERCAPTOPURINE
     Dosage: 60 MILLIGRAM, QD DAILY, AT NIGHT, DAY 1-14 + DAY 29-42
     Route: 065
     Dates: start: 20250502
  56. MERCAPTOPURINE [Concomitant]
     Active Substance: MERCAPTOPURINE
     Dosage: 60 MILLIGRAM, QD DAILY, AT NIGHT, DAY 1-14 + DAY 29-42
     Route: 065
     Dates: start: 20250503
  57. MERCAPTOPURINE [Concomitant]
     Active Substance: MERCAPTOPURINE
     Dosage: 60 MILLIGRAM, QD DAILY, AT NIGHT, DAY 1-14 + DAY 29-42
     Route: 065
     Dates: start: 20250504
  58. MERCAPTOPURINE [Concomitant]
     Active Substance: MERCAPTOPURINE
     Dosage: 0.5 DOSAGE FORM, QD DAILY, AT NIGHT, DAY 1-14 + DAY 29-42
     Route: 065
     Dates: start: 20250505
  59. MERCAPTOPURINE [Concomitant]
     Active Substance: MERCAPTOPURINE
     Dosage: 0.5 DOSAGE FORM, QD DAILY, AT NIGHT, DAY 1-14 + DAY 29-42
     Route: 065
     Dates: start: 20250506
  60. CYCLOPHOSPHAMIDE [Concomitant]
     Active Substance: CYCLOPHOSPHAMIDE
     Indication: Philadelphia chromosome positive
     Dosage: 760 MILLIGRAM (30MINUTES, DAY 1 (WECK6) AND DAY 29(WECK 9) )
     Route: 042
     Dates: start: 20250326
  61. CYCLOPHOSPHAMIDE [Concomitant]
     Active Substance: CYCLOPHOSPHAMIDE
     Indication: Acute lymphocytic leukaemia
     Dosage: 760 MILLIGRAM (30MINUTES, DAY 1 (WECK6) AND DAY 29(WECK 9) )
     Route: 042
     Dates: start: 20250423
  62. METHOTREXATE [Concomitant]
     Active Substance: METHOTREXATE
     Indication: Philadelphia chromosome positive
     Dosage: 12 MILLIGRAM (WEEKLY FOR THREE DOSES, DAY 1,DAY 8AND DAY 2)
     Route: 037
     Dates: start: 20250402
  63. METHOTREXATE [Concomitant]
     Active Substance: METHOTREXATE
     Indication: Acute lymphocytic leukaemia
     Dosage: 12 MILLIGRAM (WEEKLY FOR THREE DOSES, DAY 1,DAY 8AND DAY 2)
     Route: 037
     Dates: start: 20250423
  64. METHOTREXATE [Concomitant]
     Active Substance: METHOTREXATE
     Dosage: 12 MILLIGRAM (WEEKLY FOR THREE DOSES, DAY 1,DAY 8AND DAY 2)
     Route: 037
     Dates: start: 20250430
  65. METHOTREXATE [Concomitant]
     Active Substance: METHOTREXATE
     Dosage: 12 MILLIGRAM (WEEKLY FOR THREE DOSES, DAY 1,DAY 8AND DAY 2)
     Route: 037
     Dates: start: 20250502
  66. METHOTREXATE [Concomitant]
     Active Substance: METHOTREXATE
     Dosage: 12 MILLIGRAM (WEEKLY FOR THREE DOSES, DAY 1,DAY 8AND DAY 2)
     Route: 037
     Dates: start: 20250529
  67. METHOTREXATE [Concomitant]
     Active Substance: METHOTREXATE
     Dosage: 12 MILLIGRAM (WEEKLY FOR THREE DOSES, DAY 1,DAY 8AND DAY 2)
     Route: 037
     Dates: start: 20250615
  68. METHOTREXATE [Concomitant]
     Active Substance: METHOTREXATE
     Dosage: 12 MILLIGRAM (WEEKLY FOR THREE DOSES, DAY 1,DAY 8AND DAY 2)
     Route: 037
     Dates: start: 20250703
  69. METHOTREXATE [Concomitant]
     Active Substance: METHOTREXATE
     Dosage: 12 MILLIGRAM (WEEKLY FOR THREE DOSES, DAY 1,DAY 8AND DAY 2)
     Route: 037
     Dates: start: 20250722
  70. METHOTREXATE [Concomitant]
     Active Substance: METHOTREXATE
     Dosage: 12 MILLIGRAM (WEEKLY FOR THREE DOSES, DAY 1,DAY 8AND DAY 2)
     Route: 037
     Dates: start: 20250730
  71. METHOTREXATE [Concomitant]
     Active Substance: METHOTREXATE
     Dosage: 12 MILLIGRAM (WEEKLY FOR THREE DOSES, DAY 1,DAY 8AND DAY 2)
     Route: 037
     Dates: start: 20250802
  72. METHOTREXATE [Concomitant]
     Active Substance: METHOTREXATE
     Dosage: 12 MILLIGRAM (WEEKLY FOR THREE DOSES, DAY 1,DAY 8AND DAY 2)
     Route: 037
     Dates: start: 20250814
  73. PEG/L-ASPARAGINASE [Concomitant]
     Active Substance: PEGASPARGASE
     Indication: Philadelphia chromosome positive
     Dosage: 760 INTERNATIONAL UNIT (STRENGTH1000 U/M20
     Route: 030
     Dates: start: 20250409
  74. PEG/L-ASPARAGINASE [Concomitant]
     Active Substance: PEGASPARGASE
     Indication: Acute lymphocytic leukaemia
     Dosage: 760 INTERNATIONAL UNIT (STRENGTH1000 U/M20
     Route: 030
     Dates: start: 20250507
  75. CYTARABINE [Concomitant]
     Active Substance: CYTARABINE
     Indication: Philadelphia chromosome positive
     Dosage: 57 MILLIGRAM
     Route: 042
     Dates: start: 20250327
  76. CYTARABINE [Concomitant]
     Active Substance: CYTARABINE
     Indication: Acute lymphocytic leukaemia
     Dosage: 57 MILLIGRAM
     Route: 042
     Dates: start: 20250328
  77. CYTARABINE [Concomitant]
     Active Substance: CYTARABINE
     Dosage: 57 MILLIGRAM
     Route: 042
     Dates: start: 20250329
  78. CYTARABINE [Concomitant]
     Active Substance: CYTARABINE
     Dosage: 57 MILLIGRAM
     Route: 042
     Dates: start: 20250330
  79. CYTARABINE [Concomitant]
     Active Substance: CYTARABINE
     Dosage: 57 MILLIGRAM
     Route: 042
     Dates: start: 20250403
  80. CYTARABINE [Concomitant]
     Active Substance: CYTARABINE
     Dosage: 57 MILLIGRAM
     Route: 042
     Dates: start: 20250404
  81. CYTARABINE [Concomitant]
     Active Substance: CYTARABINE
     Dosage: 57 MILLIGRAM
     Route: 042
     Dates: start: 20250405
  82. CYTARABINE [Concomitant]
     Active Substance: CYTARABINE
     Dosage: 57 MILLIGRAM
     Route: 042
     Dates: start: 20250406
  83. CYTARABINE [Concomitant]
     Active Substance: CYTARABINE
     Dosage: 57 MILLIGRAM
     Route: 042
     Dates: start: 20250424
  84. CYTARABINE [Concomitant]
     Active Substance: CYTARABINE
     Dosage: 57 MILLIGRAM
     Route: 042
     Dates: start: 20250425
  85. CYTARABINE [Concomitant]
     Active Substance: CYTARABINE
     Dosage: 57 MILLIGRAM
     Route: 042
     Dates: start: 20250426
  86. CYTARABINE [Concomitant]
     Active Substance: CYTARABINE
     Dosage: 57 MILLIGRAM
     Route: 042
     Dates: start: 20250427
  87. CYTARABINE [Concomitant]
     Active Substance: CYTARABINE
     Dosage: 57 MILLIGRAM
     Route: 042
     Dates: start: 20250501
  88. CYTARABINE [Concomitant]
     Active Substance: CYTARABINE
     Dosage: 57 MILLIGRAM
     Route: 042
     Dates: start: 20250502
  89. CYTARABINE [Concomitant]
     Active Substance: CYTARABINE
     Dosage: 57 MILLIGRAM
     Route: 042
     Dates: start: 20250503
  90. CYTARABINE [Concomitant]
     Active Substance: CYTARABINE
     Dosage: 57 MILLIGRAM
     Route: 042
     Dates: start: 20250504
  91. SULFAMETHOXAZOLE\TRIMETHOPRIM [Concomitant]
     Active Substance: SULFAMETHOXAZOLE\TRIMETHOPRIM
     Indication: Product used for unknown indication
     Dosage: UNK
     Route: 065
     Dates: start: 20250217, end: 20250824
  92. AMIKACIN [Concomitant]
     Active Substance: AMIKACIN
     Indication: Product used for unknown indication
     Dosage: UNK
     Route: 065
     Dates: start: 20250223, end: 20250225
  93. CEFLEN [CEFALOTIN SODIUM] [Concomitant]
     Indication: Product used for unknown indication
     Dosage: UNK
     Route: 065
     Dates: start: 20250308, end: 20250312
  94. DUPHALAC [Concomitant]
     Active Substance: LACTULOSE
     Indication: Product used for unknown indication
     Dosage: UNK
     Route: 065
     Dates: start: 20250515, end: 20250521
  95. DAUNORUBICIN [Concomitant]
     Active Substance: DAUNORUBICIN
     Indication: Product used for unknown indication
     Dosage: UNK
     Route: 065
     Dates: start: 20250221, end: 20250223
  96. PANTOPRAZOLE SODIUM [Concomitant]
     Active Substance: PANTOPRAZOLE SODIUM
     Indication: Product used for unknown indication
     Dosage: UNK
     Route: 065
     Dates: start: 20250824, end: 20250824
  97. MEROPENEM [Concomitant]
     Active Substance: MEROPENEM
     Indication: Product used for unknown indication
     Dosage: UNK
     Route: 065
     Dates: start: 20250824, end: 20250824
  98. TEICOPLANIN [Concomitant]
     Active Substance: TEICOPLANIN
     Indication: Product used for unknown indication
     Dosage: UNK
     Route: 065
     Dates: start: 20250824, end: 20250824
  99. ACETAMINOPHEN [Concomitant]
     Active Substance: ACETAMINOPHEN
     Indication: Product used for unknown indication
     Dosage: UNK
     Route: 065
     Dates: start: 20250824, end: 20250824
  100. PHYTONADIONE [Concomitant]
     Active Substance: PHYTONADIONE
     Indication: Product used for unknown indication
     Dosage: UNK
     Route: 065
     Dates: start: 20250824, end: 20250824
  101. VANCOMYCIN [Concomitant]
     Active Substance: VANCOMYCIN
     Indication: Product used for unknown indication
     Dosage: UNK
     Route: 065
     Dates: start: 20250824, end: 20250824
  102. DOXORUBICIN [Concomitant]
     Active Substance: DOXORUBICIN
     Indication: Product used for unknown indication
     Dosage: UNK
     Route: 065
     Dates: start: 20250824
  103. DEXAMETHASONE [Concomitant]
     Active Substance: DEXAMETHASONE
     Indication: Product used for unknown indication

REACTIONS (6)
  - Febrile neutropenia [Fatal]
  - Acute hepatic failure [Fatal]
  - Pneumonitis [Fatal]
  - Disseminated intravascular coagulation [Fatal]
  - Sepsis [Fatal]
  - Hepatic failure [Fatal]

NARRATIVE: CASE EVENT DATE: 20250514
